FAERS Safety Report 5811171-4 (Version None)
Quarter: 2008Q3

REPORT INFORMATION
  Report Type: 
  Country: None (occurrence: None)
  Receive Date: 20080716
  Receipt Date: 20060814
  Transmission Date: 20090109
  Serious: Yes (Other)
  Sender: FDA-Public Use
  Company Number: JP-JNJFOC-20080702881

PATIENT

DRUGS (2)
  1. RISPERDAL [Suspect]
     Indication: DRUG USE FOR UNKNOWN INDICATION
     Route: 048
  2. PEROSPIRONE HYDROCHLORIDE [Concomitant]
     Route: 048

REACTIONS (3)
  - AMNESIA [None]
  - DYSKINESIA [None]
  - TREATMENT NONCOMPLIANCE [None]
